FAERS Safety Report 4289684-9 (Version None)
Quarter: 2004Q1

REPORT INFORMATION
  Report Type: 
  Country: None (occurrence: None)
  Receive Date: 20040203
  Receipt Date: 20030520
  Transmission Date: 20041129
  Serious: Yes (Hospitalization, Other)
  Sender: FDA-Public Use
  Company Number: 200318049BWH

PATIENT
  Age: 51 Year
  Sex: Male
  Weight: 75.7507 kg

DRUGS (2)
  1. AVELOX [Suspect]
     Indication: SINUSITIS
     Dosage: 400 MG, ONCE, ORAL
     Route: 048
     Dates: start: 20030506
  2. ZOCOR [Concomitant]

REACTIONS (6)
  - ANAPHYLACTIC SHOCK [None]
  - ASTHENIA [None]
  - FATIGUE [None]
  - HYPERHIDROSIS [None]
  - HYPOTENSION [None]
  - RASH MACULAR [None]
